FAERS Safety Report 23219065 (Version 1)
Quarter: 2023Q4

REPORT INFORMATION
  Report Type: Spontaneous
  Country: PT (occurrence: None)
  Receive Date: 20231122
  Receipt Date: 20231122
  Transmission Date: 20240110
  Serious: Yes (Hospitalization, Other)
  Sender: FDA-Public Use
  Company Number: 2023A258695

PATIENT
  Age: 72 Year
  Sex: Male

DRUGS (11)
  1. TAGRISSO [Suspect]
     Active Substance: OSIMERTINIB
     Indication: Lung adenocarcinoma
     Route: 048
  2. TRAZODONE [Concomitant]
     Active Substance: TRAZODONE HYDROCHLORIDE
     Dosage: WHEN LYING DOWN
  3. TRAZODONE [Concomitant]
     Active Substance: TRAZODONE HYDROCHLORIDE
  4. ESOMEPRAZOLE [Concomitant]
     Active Substance: ESOMEPRAZOLE
  5. MEXAZOLAM [Concomitant]
     Active Substance: MEXAZOLAM
  6. SIMVASTATIN [Concomitant]
     Active Substance: SIMVASTATIN
  7. BUPROPION [Concomitant]
     Active Substance: BUPROPION
  8. QUETIAPINE [Concomitant]
     Active Substance: QUETIAPINE
  9. CLONAZEPAM [Concomitant]
     Active Substance: CLONAZEPAM
  10. CLONAZEPAM [Concomitant]
     Active Substance: CLONAZEPAM
  11. HYDROCHLOROTHIAZIDE\IRBESARTAN [Concomitant]
     Active Substance: HYDROCHLOROTHIAZIDE\IRBESARTAN
     Dosage: 300 MG + 12.5 MG, EVERY 24 HOUR

REACTIONS (3)
  - Constipation [Recovering/Resolving]
  - Fall [Recovering/Resolving]
  - Gait disturbance [Recovering/Resolving]

NARRATIVE: CASE EVENT DATE: 20230802
